FAERS Safety Report 16140284 (Version 1)
Quarter: 2019Q2

REPORT INFORMATION
  Report Type: Spontaneous
  Country: US (occurrence: US)
  Receive Date: 20190329
  Receipt Date: 20190329
  Transmission Date: 20190711
  Serious: Yes (Hospitalization)
  Sender: FDA-Public Use
  Company Number: None

PATIENT
  Age: 60 Year
  Sex: Female

DRUGS (9)
  1. ENBREL [Suspect]
     Active Substance: ETANERCEPT
     Indication: RHEUMATOID ARTHRITIS
     Dosage: ?          OTHER FREQUENCY:EVERY 7 DAYS;?
     Route: 058
  2. ATORVASTATIN 10 MG [Concomitant]
     Active Substance: ATORVASTATIN
  3. SYNTHROID [Concomitant]
     Active Substance: LEVOTHYROXINE SODIUM
  4. LYRICA [Concomitant]
     Active Substance: PREGABALIN
  5. METFORMIN [Concomitant]
     Active Substance: METFORMIN HYDROCHLORIDE
  6. ZOLPIDEM ER 6.25 MG [Concomitant]
  7. RANITIDINE 150 MG [Concomitant]
     Active Substance: RANITIDINE
  8. CYCLOBENZAPRINE 5 MG [Concomitant]
     Active Substance: CYCLOBENZAPRINE HYDROCHLORIDE
  9. LEFLUNOMIDE 20 MG [Concomitant]
     Active Substance: LEFLUNOMIDE

REACTIONS (2)
  - Intervertebral disc operation [None]
  - Therapy cessation [None]

NARRATIVE: CASE EVENT DATE: 20190218
